FAERS Safety Report 21240175 (Version 17)
Quarter: 2023Q4

REPORT INFORMATION
  Report Type: Report from Study
  Country: JP (occurrence: None)
  Receive Date: 20220822
  Receipt Date: 20231002
  Transmission Date: 20240110
  Serious: Yes (Hospitalization)
  Sender: FDA-Public Use
  Company Number: JP-Eisai Medical Research-EC-2022-121674

PATIENT
  Age: 63 Year
  Sex: Male
  Weight: 75 kg

DRUGS (22)
  1. LENVATINIB [Suspect]
     Active Substance: LENVATINIB
     Indication: Oesophageal adenocarcinoma
     Route: 048
     Dates: start: 20220707, end: 20220812
  2. LENVATINIB [Suspect]
     Active Substance: LENVATINIB
     Indication: Adenocarcinoma gastric
     Route: 048
     Dates: start: 20220915, end: 20220922
  3. PEMBROLIZUMAB [Suspect]
     Active Substance: PEMBROLIZUMAB
     Indication: Oesophageal adenocarcinoma
     Route: 042
     Dates: start: 20220707, end: 20220707
  4. PEMBROLIZUMAB [Suspect]
     Active Substance: PEMBROLIZUMAB
     Indication: Adenocarcinoma gastric
  5. CAPECITABINE [Suspect]
     Active Substance: CAPECITABINE
     Indication: Oesophageal adenocarcinoma
     Dosage: BID FOR 14 DAYS
     Route: 048
     Dates: start: 20220707, end: 20220721
  6. CAPECITABINE [Suspect]
     Active Substance: CAPECITABINE
     Indication: Adenocarcinoma gastric
     Dosage: BID FOR 14 DAYS
     Route: 048
     Dates: start: 20220728, end: 20220812
  7. CAPECITABINE [Suspect]
     Active Substance: CAPECITABINE
     Dosage: BID FOR 14 DAYS
     Route: 048
     Dates: start: 20220915, end: 20220922
  8. OXALIPLATIN [Suspect]
     Active Substance: OXALIPLATIN
     Indication: Oesophageal adenocarcinoma
     Route: 042
     Dates: start: 20220707, end: 20220707
  9. OXALIPLATIN [Suspect]
     Active Substance: OXALIPLATIN
     Indication: Adenocarcinoma gastric
     Route: 042
     Dates: start: 20220728, end: 20220728
  10. OXALIPLATIN [Suspect]
     Active Substance: OXALIPLATIN
     Route: 042
     Dates: start: 20220915, end: 20220915
  11. APREPITANT [Concomitant]
     Active Substance: APREPITANT
     Dates: start: 20220707, end: 20220709
  12. PALONOSETRON HYDROCHLORIDE [Concomitant]
     Active Substance: PALONOSETRON HYDROCHLORIDE
     Route: 042
     Dates: start: 20220707, end: 20220707
  13. DEXAMETHASONE SODIUM PHOSPHATE [Concomitant]
     Active Substance: DEXAMETHASONE SODIUM PHOSPHATE
     Route: 042
     Dates: start: 20220707, end: 20220707
  14. CANAGLIFLOZIN [Concomitant]
     Active Substance: CANAGLIFLOZIN
     Dates: start: 20200415, end: 20220814
  15. VOGLIBOSE [Concomitant]
     Active Substance: VOGLIBOSE
     Dates: start: 20200415, end: 20220814
  16. EZETIMIBE [Concomitant]
     Active Substance: EZETIMIBE
     Dates: start: 20210217, end: 20220814
  17. FENOFIBRATE [Concomitant]
     Active Substance: FENOFIBRATE
     Dates: start: 20220415, end: 20220814
  18. VONOPRAZAN FUMARATE [Concomitant]
     Active Substance: VONOPRAZAN FUMARATE
     Dates: start: 202109, end: 20221026
  19. AMLODIPINE BESYLATE [Concomitant]
     Active Substance: AMLODIPINE BESYLATE
     Dates: start: 20220715, end: 20220814
  20. CANDESARTAN CILEXETIL [Concomitant]
     Active Substance: CANDESARTAN CILEXETIL
     Dates: start: 20220715, end: 20220721
  21. WHITE PETROLATUM [Concomitant]
     Active Substance: PETROLATUM
     Dates: start: 20220708, end: 20220807
  22. METFORMIN HYDROCHLORIDE\VILDAGLIPTIN [Concomitant]
     Active Substance: METFORMIN HYDROCHLORIDE\VILDAGLIPTIN
     Dates: start: 20200415, end: 20220814

REACTIONS (4)
  - Colitis [Recovered/Resolved]
  - Stomatitis [Recovered/Resolved]
  - Dehydration [Recovered/Resolved]
  - Cholangitis sclerosing [Recovered/Resolved]

NARRATIVE: CASE EVENT DATE: 20220721
